FAERS Safety Report 25300184 (Version 1)
Quarter: 2025Q2

REPORT INFORMATION
  Report Type: Spontaneous
  Country: GB (occurrence: GB)
  Receive Date: 20250512
  Receipt Date: 20250512
  Transmission Date: 20250716
  Serious: Yes (Hospitalization, Other)
  Sender: ACCORD
  Company Number: None

PATIENT
  Age: 68 Year

DRUGS (18)
  1. FUROSEMIDE [Suspect]
     Active Substance: FUROSEMIDE
     Indication: Product used for unknown indication
     Dosage: 40 MG TABLETS ONE TO BE TAKEN EACH MORNING FOR 2 WEEKS
  2. ACETAMINOPHEN [Concomitant]
     Active Substance: ACETAMINOPHEN
  3. SIMVASTATIN [Concomitant]
     Active Substance: SIMVASTATIN
  4. NICOTINE [Concomitant]
     Active Substance: NICOTINE
  5. LACTULOSE [Concomitant]
     Active Substance: LACTULOSE
  6. PRED FORTE [Concomitant]
     Active Substance: PREDNISOLONE ACETATE
  7. LANSOPRAZOLE [Concomitant]
     Active Substance: LANSOPRAZOLE
  8. ATORVASTATIN [Concomitant]
     Active Substance: ATORVASTATIN
  9. FLUTICASONE FUROATE\VILANTEROL TRIFENATATE [Concomitant]
     Active Substance: FLUTICASONE FUROATE\VILANTEROL TRIFENATATE
  10. GABAPENTIN [Concomitant]
     Active Substance: GABAPENTIN
  11. BISOPROLOL [Concomitant]
     Active Substance: BISOPROLOL
  12. AMLODIPINE [Concomitant]
     Active Substance: AMLODIPINE BESYLATE
  13. IBUPROFEN [Concomitant]
     Active Substance: IBUPROFEN
  14. ALBUTEROL [Concomitant]
     Active Substance: ALBUTEROL
  15. Hydromol [Concomitant]
  16. APIXABAN [Concomitant]
     Active Substance: APIXABAN
  17. DORZOLAMIDE [Concomitant]
     Active Substance: DORZOLAMIDE
  18. SENNA [Concomitant]
     Active Substance: SENNOSIDES

REACTIONS (1)
  - Acute kidney injury [Recovered/Resolved]
